FAERS Safety Report 4420467-2 (Version None)
Quarter: 2004Q3

REPORT INFORMATION
  Report Type: 
  Country: None (occurrence: None)
  Receive Date: 20040809
  Receipt Date: 20040305
  Transmission Date: 20050211
  Serious: No
  Sender: FDA-Public Use
  Company Number: US-GLAXOSMITHKLINE-A0501550A

PATIENT
  Sex: Female

DRUGS (3)
  1. PAXIL CR [Suspect]
     Indication: DRUG USE FOR UNKNOWN INDICATION
     Dosage: 12.5MG PER DAY
     Route: 048
     Dates: start: 20040201, end: 20040101
  2. PAROXETINE HCL [Suspect]
     Indication: DRUG USE FOR UNKNOWN INDICATION
     Dosage: 10MG UNKNOWN
     Route: 048
     Dates: start: 20040101, end: 20040305
  3. SUPPLEMENT [Concomitant]
     Indication: MENOPAUSAL SYMPTOMS
     Dates: start: 20040101, end: 20040305

REACTIONS (6)
  - ANXIETY [None]
  - DISTURBANCE IN ATTENTION [None]
  - DRUG INEFFECTIVE [None]
  - EXCORIATION [None]
  - HEADACHE [None]
  - SOMNOLENCE [None]
